FAERS Safety Report 18376281 (Version 7)
Quarter: 2021Q1

REPORT INFORMATION
  Report Type: Report from Study
  Country: US (occurrence: US)
  Receive Date: 20201013
  Receipt Date: 20210328
  Transmission Date: 20210419
  Serious: Yes (Hospitalization, Other)
  Sender: FDA-Public Use
  Company Number: NVSC2020US270237

PATIENT
  Age: 72 Year
  Sex: Male

DRUGS (4)
  1. ENTRESTO [Suspect]
     Active Substance: SACUBITRIL\VALSARTAN
     Indication: CARDIAC FAILURE
     Dosage: 50 MG, BID
     Route: 048
     Dates: start: 202009
  2. ENTRESTO [Suspect]
     Active Substance: SACUBITRIL\VALSARTAN
     Dosage: 50 MG, BID (24/26MG)
     Route: 048
     Dates: start: 20200928
  3. LASIX [Concomitant]
     Active Substance: FUROSEMIDE
     Indication: PRODUCT USED FOR UNKNOWN INDICATION
     Dosage: UNK
     Route: 065
  4. HYDROCHLOROTHIAZIDE. [Concomitant]
     Active Substance: HYDROCHLOROTHIAZIDE
     Indication: PRODUCT USED FOR UNKNOWN INDICATION
     Dosage: UNK
     Route: 065

REACTIONS (30)
  - Rectal haemorrhage [Unknown]
  - Hiccups [Unknown]
  - Pain in extremity [Unknown]
  - Memory impairment [Unknown]
  - Dyspepsia [Unknown]
  - Syncope [Unknown]
  - Suicidal ideation [Unknown]
  - Peripheral swelling [Unknown]
  - Cardiac dysfunction [Unknown]
  - Hypokalaemia [Unknown]
  - Decreased appetite [Unknown]
  - Loss of consciousness [Unknown]
  - Myocardial infarction [Unknown]
  - Haematochezia [Unknown]
  - Dyspnoea [Unknown]
  - Incontinence [Unknown]
  - Back pain [Unknown]
  - Headache [Unknown]
  - Diarrhoea [Unknown]
  - Dizziness [Unknown]
  - Skin discolouration [Unknown]
  - Dry skin [Unknown]
  - Nervousness [Unknown]
  - Cough [Unknown]
  - Gait inability [Unknown]
  - Product dose omission issue [Unknown]
  - Abdominal discomfort [Unknown]
  - Dysstasia [Unknown]
  - Abdominal pain [Unknown]
  - Vomiting [Unknown]

NARRATIVE: CASE EVENT DATE: 2020
